FAERS Safety Report 4824901-5 (Version None)
Quarter: 2005Q4

REPORT INFORMATION
  Report Type: 
  Country: None (occurrence: None)
  Receive Date: 20051110
  Receipt Date: 20051107
  Transmission Date: 20060501
  Serious: Yes (Hospitalization)
  Sender: FDA-Public Use
  Company Number: ES-GLAXOSMITHKLINE-B0399907A

PATIENT
  Age: 77 Year
  Sex: Male

DRUGS (2)
  1. VENTOLIN [Suspect]
     Indication: BRONCHITIS ACUTE
     Route: 042
     Dates: start: 20051030, end: 20051030
  2. VENTOLIN [Concomitant]
     Indication: DRUG USE FOR UNKNOWN INDICATION
     Route: 055

REACTIONS (7)
  - BLOOD GLUCOSE INCREASED [None]
  - CHEST PAIN [None]
  - DRUG ADMINISTRATION ERROR [None]
  - FLUID RETENTION [None]
  - INCORRECT ROUTE OF DRUG ADMINISTRATION [None]
  - RESTLESSNESS [None]
  - TACHYCARDIA [None]
